FAERS Safety Report 22023109 (Version 3)
Quarter: 2023Q2

REPORT INFORMATION
  Report Type: Report from Study
  Country: US (occurrence: US)
  Receive Date: 20230223
  Receipt Date: 20230412
  Transmission Date: 20230722
  Serious: No
  Sender: FDA-Public Use
  Company Number: US-002147023-NVSC2022US303507

PATIENT
  Sex: Female

DRUGS (2)
  1. HYDROXYCHLOROQUINE [Suspect]
     Active Substance: HYDROXYCHLOROQUINE
     Indication: Psoriatic arthropathy
     Dosage: UNK
     Route: 065
     Dates: start: 202003, end: 202207
  2. SULFASALAZINE [Suspect]
     Active Substance: SULFASALAZINE
     Indication: Psoriatic arthropathy
     Dosage: UNK
     Route: 065
     Dates: start: 202201

REACTIONS (1)
  - Drug ineffective [Unknown]
